FAERS Safety Report 21475988 (Version 1)
Quarter: 2022Q4

REPORT INFORMATION
  Report Type: Spontaneous
  Country: US (occurrence: None)
  Receive Date: 20221019
  Receipt Date: 20221019
  Transmission Date: 20230112
  Serious: No
  Sender: FDA-Public Use
  Company Number: US-ADAMAS Pharma-ADM202208-002610

PATIENT
  Age: 74 Year
  Sex: Male

DRUGS (2)
  1. GOCOVRI [Suspect]
     Active Substance: AMANTADINE
     Indication: Parkinson^s disease
     Dosage: FOR SEVEN DAYS
     Route: 048
     Dates: start: 20220727
  2. GOCOVRI [Suspect]
     Active Substance: AMANTADINE
     Route: 048

REACTIONS (1)
  - Balance disorder [Not Recovered/Not Resolved]
